FAERS Safety Report 9468103 (Version 2)
Quarter: 2013Q3

REPORT INFORMATION
  Report Type: Spontaneous
  Country: US (occurrence: US)
  Receive Date: 20130821
  Receipt Date: 20130909
  Transmission Date: 20140515
  Serious: Yes (Death, Other)
  Sender: FDA-Public Use
  Company Number: US-PFIZER INC-2013238475

PATIENT
  Age: 65 Year
  Sex: Male

DRUGS (1)
  1. REVATIO [Suspect]
     Dosage: TWO 20MG TABLETS THREE TIMES DAILY

REACTIONS (3)
  - Pulmonary fibrosis [Fatal]
  - Disease progression [Fatal]
  - Off label use [Unknown]
